FAERS Safety Report 9523470 (Version 1)
Quarter: 2013Q3

REPORT INFORMATION
  Report Type: Report from Study
  Country: BR (occurrence: BR)
  Receive Date: 20130913
  Receipt Date: 20130913
  Transmission Date: 20140515
  Serious: Yes (Hospitalization, Other)
  Sender: FDA-Public Use
  Company Number: PHHY2013BR099310

PATIENT
  Age: 52 Year
  Sex: Male

DRUGS (7)
  1. BUDESONIDE [Suspect]
     Indication: ASTHMA
     Dosage: 1200 UG/ DAY
  2. AMINOPHYLLINE SANDOZ [Suspect]
     Indication: ASTHMA
     Dosage: 800 MG/ DAY
  3. FORASEQ [Concomitant]
  4. PREDNISONE [Concomitant]
  5. SALBUTAMOL [Concomitant]
  6. TIOTROPIUM BROMIDE [Concomitant]
  7. XOLAIR [Concomitant]

REACTIONS (12)
  - Bronchopneumonia [Unknown]
  - Wheezing [Recovering/Resolving]
  - Tachypnoea [Unknown]
  - Chronic obstructive pulmonary disease [Recovering/Resolving]
  - Asthma [Recovering/Resolving]
  - Obstructive airways disorder [Recovering/Resolving]
  - Emphysema [Recovering/Resolving]
  - Nasal turbinate hypertrophy [Unknown]
  - Respiratory tract infection [Unknown]
  - Conjunctival hyperaemia [Unknown]
  - Dysacusis [Recovering/Resolving]
  - Body mass index increased [Unknown]
